FAERS Safety Report 8223055-5 (Version None)
Quarter: 2012Q1

REPORT INFORMATION
  Report Type: 
  Country: None (occurrence: None)
  Receive Date: 20120321
  Receipt Date: 20120312
  Transmission Date: 20120608
  Serious: Yes (Other)
  Sender: FDA-Public Use
  Company Number: US-ASTRAZENECA-2011SE32264

PATIENT
  Age: 39 Year
  Sex: Female
  Weight: 99.8 kg

DRUGS (22)
  1. ZOLOFT [Concomitant]
     Indication: GENERALISED ANXIETY DISORDER
  2. LORAZEPAM [Concomitant]
     Indication: DEPRESSION
  3. GAVISCON [Concomitant]
  4. ZOLOFT [Concomitant]
     Indication: BIPOLAR DISORDER
  5. NEXIUM [Suspect]
     Indication: GASTROOESOPHAGEAL REFLUX DISEASE
     Dosage: ONCE A DAY
     Route: 048
  6. LORAZEPAM [Concomitant]
     Indication: GENERALISED ANXIETY DISORDER
  7. LORAZEPAM [Concomitant]
     Indication: BIPOLAR DISORDER
  8. WELLBUTRIN [Concomitant]
  9. VERAPAMIL [Concomitant]
  10. PROZAC [Concomitant]
  11. LATUDA [Concomitant]
     Indication: DEPRESSION
  12. LATUDA [Concomitant]
     Indication: BIPOLAR DISORDER
  13. BLACK COHOSH ROOT [Concomitant]
  14. CALCIUM CITRATE [Concomitant]
  15. PREVACID [Concomitant]
  16. OMNIPRAZOLE [Concomitant]
  17. ZOLOFT [Concomitant]
     Indication: DEPRESSION
  18. NORTRYTOLINE [Concomitant]
  19. NEXIUM [Suspect]
     Route: 048
     Dates: start: 20070101, end: 20100101
  20. VALTREX [Concomitant]
  21. LIKINOPRIL [Concomitant]
  22. LATUDA [Concomitant]
     Indication: GENERALISED ANXIETY DISORDER

REACTIONS (4)
  - FOOT FRACTURE [None]
  - PAIN IN EXTREMITY [None]
  - STRESS FRACTURE [None]
  - PLANTAR FASCIITIS [None]
